FAERS Safety Report 25316615 (Version 1)
Quarter: 2025Q2

REPORT INFORMATION
  Report Type: Spontaneous
  Country: US (occurrence: US)
  Receive Date: 20250515
  Receipt Date: 20250515
  Transmission Date: 20250717
  Serious: Yes (Hospitalization)
  Sender: EMCURE PHARMACEUTICALS LTD
  Company Number: US-AVET LIFESCIENCES LTD-2025-AVET-000156

PATIENT
  Age: 36 Year
  Sex: Female

DRUGS (2)
  1. METHIMAZOLE [Suspect]
     Active Substance: METHIMAZOLE
     Indication: Graves^ disease
     Route: 065
  2. ATENOLOL [Concomitant]
     Active Substance: ATENOLOL
     Indication: Product used for unknown indication
     Route: 065

REACTIONS (5)
  - Systemic candida [Recovering/Resolving]
  - Serratia bacteraemia [Recovering/Resolving]
  - Agranulocytosis [Recovering/Resolving]
  - Antineutrophil cytoplasmic antibody positive [Recovering/Resolving]
  - Hepatic enzyme increased [Recovering/Resolving]
